FAERS Safety Report 7031951-X (Version None)
Quarter: 2010Q4

REPORT INFORMATION
  Report Type: 
  Country: None (occurrence: None)
  Receive Date: 20101007
  Receipt Date: 20100930
  Transmission Date: 20110411
  Serious: Yes (Other)
  Sender: FDA-Public Use
  Company Number: GB-ELI_LILLY_AND_COMPANY-GB201010000437

PATIENT
  Sex: Male

DRUGS (2)
  1. BYETTA [Suspect]
     Dosage: 5 UG, UNK
     Dates: start: 20090624, end: 20090902
  2. BYETTA [Suspect]
     Dosage: 10 UG, UNK
     Dates: start: 20090902

REACTIONS (1)
  - PANCREATITIS [None]
